FAERS Safety Report 10959626 (Version 1)
Quarter: 2015Q1

REPORT INFORMATION
  Report Type: Report from Study
  Country: JP (occurrence: JP)
  Receive Date: 20150327
  Receipt Date: 20150327
  Transmission Date: 20150721
  Serious: Yes (Hospitalization)
  Sender: FDA-Public Use
  Company Number: JP-ACTELION-A-CH2014-97881

PATIENT
  Age: 33 Year
  Sex: Male
  Weight: 46.3 kg

DRUGS (8)
  1. METILDIGOXIN [Concomitant]
     Active Substance: METILDIGOXIN
  2. TRACLEER [Suspect]
     Active Substance: BOSENTAN\BOSENTAN MONOHYDRATE
     Dosage: 62.5 MG, BID
     Route: 048
     Dates: start: 20100617, end: 20101109
  3. FUROSEMIDE. [Concomitant]
     Active Substance: FUROSEMIDE
  4. AMBRISENTAN [Suspect]
     Active Substance: AMBRISENTAN
     Indication: PULMONARY ARTERIAL HYPERTENSION
     Dosage: 5 MG, UNK
     Route: 048
     Dates: start: 201011
  5. TRACLEER [Suspect]
     Active Substance: BOSENTAN\BOSENTAN MONOHYDRATE
     Indication: PULMONARY ARTERIAL HYPERTENSION
     Dosage: 31.25 MG, BID
     Route: 048
     Dates: start: 20090414, end: 20100616
  6. TADALAFIL [Suspect]
     Active Substance: TADALAFIL
     Indication: PULMONARY ARTERIAL HYPERTENSION
     Dosage: 40 MG, OD
     Route: 048
     Dates: start: 20100204, end: 20100225
  7. TADALAFIL [Suspect]
     Active Substance: TADALAFIL
     Dosage: 20 MG, OD
     Route: 048
     Dates: start: 20100226, end: 20100325
  8. WARFARIN POTASSIUM [Concomitant]
     Active Substance: WARFARIN POTASSIUM

REACTIONS (11)
  - Platelet count decreased [Recovered/Resolved]
  - Pneumonia [Unknown]
  - Dyspnoea [Recovering/Resolving]
  - C-reactive protein increased [Unknown]
  - Pulmonary arterial hypertension [Recovering/Resolving]
  - Hepatic enzyme increased [Unknown]
  - White blood cell count increased [Unknown]
  - Brain natriuretic peptide increased [Unknown]
  - Walking distance test abnormal [Recovering/Resolving]
  - Condition aggravated [Recovering/Resolving]
  - Blood pressure decreased [Unknown]

NARRATIVE: CASE EVENT DATE: 20100325
